FAERS Safety Report 6304511-3 (Version None)
Quarter: 2009Q3

REPORT INFORMATION
  Report Type: 
  Country: None (occurrence: None)
  Receive Date: 20090806
  Receipt Date: 20090723
  Transmission Date: 20100115
  Serious: Yes (Hospitalization)
  Sender: FDA-Public Use
  Company Number: 1000007825

PATIENT
  Age: 59 Year
  Sex: Female

DRUGS (4)
  1. ESCITALOPRAM [Suspect]
     Dosage: ORAL
     Route: 048
  2. ESPERAL (TABLETS) [Suspect]
     Dosage: 500 MG (500 MG, 1 IN 1 D), ORAL
     Route: 048
     Dates: start: 20090601, end: 20090706
  3. GLUCOR [Concomitant]
  4. SEGLOR [Concomitant]

REACTIONS (6)
  - CONFUSIONAL STATE [None]
  - GRAND MAL CONVULSION [None]
  - LOSS OF CONSCIOUSNESS [None]
  - MALAISE [None]
  - OEDEMA PERIPHERAL [None]
  - TONGUE BITING [None]
